FAERS Safety Report 4602201-6 (Version None)
Quarter: 2005Q2

REPORT INFORMATION
  Report Type: 
  Country: None (occurrence: None)
  Receive Date: 20050215
  Receipt Date: 20041122
  Transmission Date: 20051028
  Serious: No
  Sender: FDA-Public Use
  Company Number: MC200400834

PATIENT
  Sex: Female

DRUGS (2)
  1. ANGIOMAX [Suspect]
     Dosage: 0.75 MG/KG, BOLUS, IV BOLUS
     Route: 040
     Dates: start: 20040101, end: 20040101
  2. ANGIOMAX [Suspect]
     Dosage: 1.75 MG/KG/HR, INTRAVNEOUS
     Route: 042
     Dates: start: 20040101, end: 20040101

REACTIONS (1)
  - HAEMATOMA [None]
